FAERS Safety Report 25226155 (Version 1)
Quarter: 2025Q2

REPORT INFORMATION
  Report Type: Spontaneous
  Country: US (occurrence: None)
  Receive Date: 20250422
  Receipt Date: 20250422
  Transmission Date: 20250717
  Serious: Yes (Hospitalization, Other)
  Sender: FDA-CTU
  Company Number: None

PATIENT
  Age: 65 Year
  Sex: Female
  Weight: 103.5 kg

DRUGS (13)
  1. CAPLYTA [Suspect]
     Active Substance: LUMATEPERONE
     Indication: Bipolar disorder
     Dosage: FREQUENCY : DAILY;?
     Route: 048
     Dates: start: 20250106, end: 20250420
  2. ADDERALL [Concomitant]
     Active Substance: AMPHETAMINE ASPARTATE\AMPHETAMINE SULFATE\DEXTROAMPHETAMINE SACCHARATE\DEXTROAMPHETAMINE SULFATE
  3. TOPAMAX [Concomitant]
     Active Substance: TOPIRAMATE
  4. BENZTROPINE [Concomitant]
     Active Substance: BENZTROPINE
  5. MIRTAZAPINE [Concomitant]
     Active Substance: MIRTAZAPINE
  6. REXULTI [Concomitant]
     Active Substance: BREXPIPRAZOLE
  7. VRAYLAR [Concomitant]
     Active Substance: CARIPRAZINE
  8. VALSARTAN [Concomitant]
     Active Substance: VALSARTAN
  9. GABAPENTIN [Concomitant]
     Active Substance: GABAPENTIN
  10. HYDROCHLOROTHIAZIDE [Concomitant]
     Active Substance: HYDROCHLOROTHIAZIDE
  11. METFORMIN [Concomitant]
     Active Substance: METFORMIN HYDROCHLORIDE
  12. OMEPRAZOLE [Concomitant]
     Active Substance: OMEPRAZOLE
  13. ATORVASTATIN [Concomitant]
     Active Substance: ATORVASTATIN

REACTIONS (2)
  - Nightmare [None]
  - Transient ischaemic attack [None]

NARRATIVE: CASE EVENT DATE: 20250418
